FAERS Safety Report 20263710 (Version 1)
Quarter: 2021Q4

REPORT INFORMATION
  Report Type: Spontaneous
  Country: US (occurrence: US)
  Receive Date: 20211231
  Receipt Date: 20211231
  Transmission Date: 20220303
  Serious: No
  Sender: FDA-Public Use
  Company Number: US-AMGEN-USASP2021206795

PATIENT
  Sex: Male

DRUGS (4)
  1. OTEZLA [Suspect]
     Active Substance: APREMILAST
     Indication: Psoriasis
     Dosage: 1 DOSAGE FORM, BID
     Route: 048
     Dates: start: 20201215
  2. HYDROCORTISONE VALERATE [Concomitant]
     Active Substance: HYDROCORTISONE VALERATE
     Dosage: UNK
  3. PAROXETINE [Concomitant]
     Active Substance: PAROXETINE
     Dosage: 10 MILLIGRAM
  4. TADALAFIL [Concomitant]
     Active Substance: TADALAFIL
     Dosage: 20 MILLIGRAM

REACTIONS (1)
  - Psoriasis [Recovering/Resolving]
